FAERS Safety Report 9564729 (Version 2)
Quarter: 2014Q1

REPORT INFORMATION
  Report Type: Spontaneous
  Country: US (occurrence: US)
  Receive Date: 20130930
  Receipt Date: 20140324
  Transmission Date: 20141002
  Serious: No
  Sender: FDA-Public Use
  Company Number: US-PFIZER INC-2013277506

PATIENT
  Age: 71 Year
  Sex: Female

DRUGS (13)
  1. LYRICA [Suspect]
     Indication: NEURALGIA
     Dosage: 200 MG, ONCE A DAY
  2. LYRICA [Suspect]
     Dosage: 100 MG, 3X/DAY (1-2 PO Q 8 HRS)
     Route: 048
     Dates: start: 20140218
  3. CHANTIX [Concomitant]
     Indication: SMOKING CESSATION THERAPY
     Dosage: 1 MG, 2X/DAY
     Route: 048
     Dates: start: 20130418
  4. AMBIEN [Concomitant]
     Indication: SLEEP DISORDER
     Dosage: 10 MG, 1X/DAY (1/2 TO 1 PO QHS PRN)
     Route: 048
     Dates: start: 20100319
  5. ADDERALL [Concomitant]
     Indication: ATTENTION DEFICIT/HYPERACTIVITY DISORDER
     Dosage: 30 MG, 2X/DAY
     Route: 048
     Dates: start: 20120201
  6. OXYBUTYNIN CHLORIDE [Concomitant]
     Dosage: 10 MG, 3X/DAY
     Route: 048
     Dates: start: 20120806
  7. HYDROCHLOROTHIAZIDE [Concomitant]
     Dosage: 25 MG, 1X/DAY
     Dates: start: 20121108
  8. ROBAXIN [Concomitant]
     Indication: MUSCLE DISORDER
     Dosage: 750 MG, 4X/DAY (PRN)
     Route: 048
     Dates: start: 20131121
  9. MS CONTIN [Concomitant]
     Indication: PAIN
     Dosage: 60 MG, 3X/DAY (Q 8 HRS)
     Route: 048
     Dates: start: 20140218
  10. DILAUDID [Concomitant]
     Indication: PAIN
     Dosage: 2 MG, 1X/DAY (PRN)
     Route: 048
     Dates: start: 20140218
  11. COMPAZINE [Concomitant]
     Indication: NAUSEA
     Dosage: 5 MG, 3X/DAY
     Route: 048
     Dates: start: 20140218
  12. COMPAZINE [Concomitant]
     Indication: VOMITING
  13. PERCOCET [Concomitant]
     Indication: BREAKTHROUGH PAIN
     Dosage: UNK, (10 MG - 325MG)
     Route: 048
     Dates: start: 20140218

REACTIONS (1)
  - Impaired driving ability [Unknown]
